FAERS Safety Report 13680150 (Version 2)
Quarter: 2017Q3

REPORT INFORMATION
  Report Type: Report from Study
  Country: US (occurrence: US)
  Receive Date: 20170622
  Receipt Date: 20170725
  Transmission Date: 20171127
  Serious: Yes (Hospitalization, Other)
  Sender: FDA-Public Use
  Company Number: US-ACTELION-A-NJ2017-155707

PATIENT
  Age: 67 Year
  Sex: Female
  Weight: 126.98 kg

DRUGS (25)
  1. ADCIRCA [Concomitant]
     Active Substance: TADALAFIL
  2. ORENITRAM [Concomitant]
     Active Substance: TREPROSTINIL
  3. ESOMEPRAZOLE [Concomitant]
     Active Substance: ESOMEPRAZOLE
  4. GABAPENTIN. [Concomitant]
     Active Substance: GABAPENTIN
  5. OPSUMIT [Suspect]
     Active Substance: MACITENTAN
     Indication: PULMONARY ARTERIAL HYPERTENSION
     Dosage: 10 MG, QD
     Route: 048
  6. CITALOPRAM HCL [Concomitant]
     Active Substance: CITALOPRAM HYDROCHLORIDE
  7. HYDROCODONE BITARTRATE AND ACETAMINOPHEN [Concomitant]
     Active Substance: ACETAMINOPHEN\HYDROCODONE BITARTRATE
  8. LIDOCAINE. [Concomitant]
     Active Substance: LIDOCAINE
  9. MECLIZINE [Concomitant]
     Active Substance: MECLIZINE HYDROCHLORIDE
  10. AZELASTINE [Concomitant]
     Active Substance: AZELASTINE
  11. METOPROLOL. [Concomitant]
     Active Substance: METOPROLOL
  12. CALCIUM + VITAMIN D [Concomitant]
     Active Substance: CALCIUM\VITAMIN D
  13. DOXYCYCLINE. [Concomitant]
     Active Substance: DOXYCYCLINE
  14. RECLAST [Concomitant]
     Active Substance: ZOLEDRONIC ACID
  15. SIMVASTATIN. [Concomitant]
     Active Substance: SIMVASTATIN
  16. WARFARIN [Concomitant]
     Active Substance: WARFARIN
  17. ARNUITY ELLIPTA [Concomitant]
     Active Substance: FLUTICASONE FUROATE
  18. FAMOTIDINE. [Concomitant]
     Active Substance: FAMOTIDINE
  19. FLUTICASONE PROPIONATE. [Concomitant]
     Active Substance: FLUTICASONE PROPIONATE
  20. METOLAZONE. [Concomitant]
     Active Substance: METOLAZONE
  21. NEXIUM [Concomitant]
     Active Substance: ESOMEPRAZOLE MAGNESIUM
  22. LASIX [Concomitant]
     Active Substance: FUROSEMIDE
  23. PROAIR HFA [Concomitant]
     Active Substance: ALBUTEROL SULFATE
  24. AMIODARONE [Concomitant]
     Active Substance: AMIODARONE
  25. SPIRONOLACTONE. [Concomitant]
     Active Substance: SPIRONOLACTONE

REACTIONS (8)
  - Cataract operation [Unknown]
  - Atrial fibrillation [Unknown]
  - Synovial cyst [Unknown]
  - Uterine dilation and curettage [Unknown]
  - Cardiac pacemaker insertion [Unknown]
  - Turbinectomy [Unknown]
  - Eyelid operation [Unknown]
  - Umbilical hernia repair [Unknown]

NARRATIVE: CASE EVENT DATE: 2014
